FAERS Safety Report 4394641-8 (Version None)
Quarter: 2004Q3

REPORT INFORMATION
  Report Type: 
  Country: None (occurrence: None)
  Receive Date: 20040706
  Receipt Date: 20040618
  Transmission Date: 20050211
  Serious: Yes (Hospitalization)
  Sender: FDA-Public Use
  Company Number: 194826

PATIENT
  Age: 47 Year
  Sex: Female
  Weight: 68.9467 kg

DRUGS (14)
  1. AVONEX [Suspect]
     Indication: MULTIPLE SCLEROSIS
     Dosage: 30 MCG QW IM
     Route: 030
     Dates: start: 20020222, end: 20030901
  2. AVONEX [Suspect]
     Indication: MULTIPLE SCLEROSIS
     Dosage: 30 MCG QW IM
     Route: 030
     Dates: start: 20030901
  3. METOPROLOL SUCCINATE [Concomitant]
  4. ALLEGRA [Concomitant]
  5. ALBUTEROL [Concomitant]
  6. ASPIRIN [Concomitant]
  7. PROVIGIL [Concomitant]
  8. BACLOFEN [Concomitant]
  9. FAMOTIDINE [Concomitant]
  10. CALCIUM WITH VITAMIN D [Concomitant]
  11. MULTI-VITAMINS [Concomitant]
  12. ZITHROMAX [Concomitant]
  13. CODEINE W/GUAIFENESIN [Concomitant]
  14. PREDNISONE [Concomitant]

REACTIONS (7)
  - ANXIETY [None]
  - BENIGN BREAST NEOPLASM [None]
  - CONDITION AGGRAVATED [None]
  - FATIGUE [None]
  - MUSCLE SPASTICITY [None]
  - PAIN [None]
  - UTERINE LEIOMYOMA [None]
